FAERS Safety Report 25078057 (Version 1)
Quarter: 2025Q1

REPORT INFORMATION
  Report Type: Spontaneous
  Country: US (occurrence: US)
  Receive Date: 20250314
  Receipt Date: 20250314
  Transmission Date: 20250409
  Serious: No
  Sender: SCIEGEN PHARMACEUTICALS INC
  Company Number: US-SCIEGENP-2025SCSPO00029

PATIENT
  Age: 80 Year
  Sex: Female

DRUGS (4)
  1. PREGABALIN [Suspect]
     Active Substance: PREGABALIN
     Indication: Product used for unknown indication
     Dosage: 2 CAPSULES TWICE A DAY FOR 1 YEAR
     Route: 065
     Dates: start: 2024, end: 2025
  2. PREGABALIN [Suspect]
     Active Substance: PREGABALIN
     Dosage: ONE CAPSULE A DAY
     Route: 065
     Dates: start: 20250205, end: 202502
  3. PREGABALIN [Suspect]
     Active Substance: PREGABALIN
     Route: 065
     Dates: start: 20250213
  4. TRAZODONE [Concomitant]
     Active Substance: TRAZODONE HYDROCHLORIDE
     Indication: Product used for unknown indication
     Route: 065

REACTIONS (4)
  - Anal incontinence [Unknown]
  - Dizziness [Unknown]
  - Pollakiuria [Unknown]
  - Chills [Unknown]

NARRATIVE: CASE EVENT DATE: 20250201
